FAERS Safety Report 5167110-5 (Version None)
Quarter: 2006Q4

REPORT INFORMATION
  Report Type: 
  Country: None (occurrence: None)
  Receive Date: 20061207
  Receipt Date: 20061023
  Transmission Date: 20070319
  Serious: Yes (Hospitalization)
  Sender: FDA-Public Use
  Company Number: JP-JPN-A200604492

PATIENT
  Age: 69 Year
  Sex: Female
  Weight: 56 kg

DRUGS (6)
  1. VALTREX [Suspect]
     Indication: HERPES ZOSTER
     Dosage: 1000MG PER DAY
     Route: 048
     Dates: start: 20061021, end: 20061021
  2. VICCLOX [Suspect]
     Indication: HERPES ZOSTER
     Dosage: 250MG PER DAY
     Route: 042
     Dates: start: 20061020, end: 20061020
  3. MEXITIL [Concomitant]
     Indication: VENTRICULAR EXTRASYSTOLES
     Dosage: 100MG THREE TIMES PER DAY
     Route: 048
     Dates: start: 20030701
  4. GASMOTIN [Concomitant]
     Dosage: 5MG THREE TIMES PER DAY
     Route: 048
     Dates: start: 20030701
  5. CERCINE [Concomitant]
     Indication: INSOMNIA
     Dosage: 2MG PER DAY
     Route: 048
     Dates: start: 20030701
  6. ALTAT [Concomitant]
     Dosage: 75MG PER DAY
     Route: 065
     Dates: start: 20030701

REACTIONS (5)
  - DEPRESSED LEVEL OF CONSCIOUSNESS [None]
  - DISORIENTATION [None]
  - HEADACHE [None]
  - MUSCULAR WEAKNESS [None]
  - TOXIC INDUCED ENCEPHALOPATHY [None]
